FAERS Safety Report 5673813-6 (Version None)
Quarter: 2008Q1

REPORT INFORMATION
  Report Type: 
  Country: None (occurrence: None)
  Receive Date: 20080319
  Receipt Date: 20080311
  Transmission Date: 20080703
  Serious: Yes (Other)
  Sender: FDA-Public Use
  Company Number: US-GENENTECH-257530

PATIENT
  Age: 60 Year
  Sex: Female

DRUGS (5)
  1. BEVACIZUMAB [Suspect]
     Indication: COLON CANCER METASTATIC
     Dosage: UNK, UNK
     Dates: start: 20060130
  2. OXALIPLATIN [Concomitant]
     Indication: COLON CANCER METASTATIC
     Dates: start: 20060130, end: 20060717
  3. FLUOROURACIL [Concomitant]
     Indication: COLON CANCER METASTATIC
     Dosage: UNK, UNK
     Dates: start: 20060130, end: 20070521
  4. LEUCOVORIN CALCIUM [Concomitant]
     Indication: COLON CANCER METASTATIC
     Dosage: UNK, UNK
     Dates: start: 20060130, end: 20070521
  5. CETUXIMAB [Concomitant]
     Indication: COLON CANCER METASTATIC
     Dates: start: 20060130

REACTIONS (1)
  - VARICES OESOPHAGEAL [None]
